FAERS Safety Report 11150094 (Version 1)
Quarter: 2015Q2

REPORT INFORMATION
  Report Type: Report from Study
  Country: DE (occurrence: DE)
  Receive Date: 20150529
  Receipt Date: 20150529
  Transmission Date: 20150821
  Serious: Yes (Death, Other)
  Sender: FDA-Public Use
  Company Number: DE-ACTELION-A-US2012-61087

PATIENT
  Age: 72 Year
  Sex: Male

DRUGS (8)
  1. VENTAVIS [Suspect]
     Active Substance: ILOPROST
     Dosage: 2.5 MCG, 6X/DAY
     Route: 055
     Dates: start: 20111215
  2. VENTAVIS [Suspect]
     Active Substance: ILOPROST
     Indication: PULMONARY ARTERIAL HYPERTENSION
     Dosage: 5 MCG, Q4HR
     Route: 055
     Dates: start: 20111222, end: 20120207
  3. PANTOPRAZOLE [Concomitant]
     Active Substance: PANTOPRAZOLE SODIUM
  4. DIGIMERCK [Concomitant]
     Active Substance: DIGITOXIN
  5. VOLIBRIS [Concomitant]
     Active Substance: AMBRISENTAN
  6. TORASEMIDE [Concomitant]
     Active Substance: TORSEMIDE
  7. ADCIRCA [Concomitant]
     Active Substance: TADALAFIL
  8. HCT [Concomitant]
     Active Substance: HYDROCHLOROTHIAZIDE

REACTIONS (2)
  - Drug ineffective [Unknown]
  - Death [Fatal]

NARRATIVE: CASE EVENT DATE: 20120207
